FAERS Safety Report 7585782-2 (Version None)
Quarter: 2011Q3

REPORT INFORMATION
  Report Type: 
  Country: None (occurrence: None)
  Receive Date: 20110701
  Receipt Date: 20110613
  Transmission Date: 20111222
  Serious: Yes (Hospitalization, Other)
  Sender: FDA-Public Use
  Company Number: US-BAYER-2011-045843

PATIENT
  Age: 21 Year
  Sex: Female
  Weight: 79.365 kg

DRUGS (3)
  1. ASCORBIC ACID [Concomitant]
  2. YAZ [Suspect]
  3. MOTRIN [Concomitant]

REACTIONS (7)
  - NAUSEA [None]
  - CHOLECYSTITIS CHRONIC [None]
  - CHILLS [None]
  - BILE DUCT STONE [None]
  - HEPATIC ENZYME INCREASED [None]
  - ABDOMINAL PAIN [None]
  - VOMITING [None]
